FAERS Safety Report 8791556 (Version 1)
Quarter: 2012Q4

REPORT INFORMATION
  Report Type: Spontaneous
  Country: DK (occurrence: None)
  Receive Date: 20120913
  Receipt Date: 20120913
  Transmission Date: 20130627
  Serious: Yes (Hospitalization)
  Sender: FDA-Public Use
  Company Number: 2012MA011083

PATIENT
  Age: 11 Month
  Sex: Male

DRUGS (1)
  1. ACYCLOVIR [Suspect]
     Indication: VARICELLA
     Route: 048
     Dates: start: 20120403, end: 20120403

REACTIONS (4)
  - Abdominal pain [None]
  - Vomiting [None]
  - Overdose [None]
  - Medication error [None]
